FAERS Safety Report 5536775-8 (Version None)
Quarter: 2007Q4

REPORT INFORMATION
  Report Type: 
  Country: None (occurrence: None)
  Receive Date: 20071206
  Receipt Date: 20070424
  Transmission Date: 20080405
  Serious: Yes (Other)
  Sender: FDA-Public Use
  Company Number: US-AMGEN-STX214528

PATIENT
  Sex: Male
  Weight: 56.8 kg

DRUGS (3)
  1. ENBREL [Suspect]
     Indication: RHEUMATOID ARTHRITIS
     Route: 058
     Dates: start: 20010130, end: 20060901
  2. METHOTREXATE [Concomitant]
     Dates: start: 20001001, end: 20060901
  3. PREDNISONE TAB [Concomitant]
     Dates: start: 19991201

REACTIONS (1)
  - DERMATOFIBROSARCOMA [None]
